FAERS Safety Report 6304501-0 (Version None)
Quarter: 2009Q3

REPORT INFORMATION
  Report Type: 
  Country: None (occurrence: None)
  Receive Date: 20090806
  Receipt Date: 20090728
  Transmission Date: 20100115
  Serious: Yes (Other)
  Sender: FDA-Public Use
  Company Number: 8043138

PATIENT
  Age: 26 Year
  Sex: Female

DRUGS (5)
  1. KEPPRA [Suspect]
     Indication: CONVULSION
     Dosage: 1000 MG PO
     Route: 048
     Dates: start: 20080401
  2. DILANTIN [Concomitant]
  3. FOLIC ACID [Concomitant]
  4. CALCIUM W/VITAMIN D [Concomitant]
  5. PRENATAL VITAMINS /01549301/ [Concomitant]

REACTIONS (3)
  - GESTATIONAL DIABETES [None]
  - GRAND MAL CONVULSION [None]
  - PREGNANCY [None]
